FAERS Safety Report 17568320 (Version 2)
Quarter: 2020Q1

REPORT INFORMATION
  Report Type: Spontaneous
  Country: US (occurrence: US)
  Receive Date: 20200320
  Receipt Date: 20200326
  Transmission Date: 20200409
  Serious: Yes (Other)
  Sender: FDA-Public Use
  Company Number: US-PFIZER INC-2020119844

PATIENT
  Age: 55 Year
  Sex: Female

DRUGS (2)
  1. NICOTROL [Suspect]
     Active Substance: NICOTINE
     Dosage: UNK; (4 MG DOSE FROM A 10MG SIZE CARTRIDGE)
  2. PREMARIN [Suspect]
     Active Substance: ESTROGENS, CONJUGATED
     Dosage: UNK

REACTIONS (4)
  - Malaise [Unknown]
  - Autoimmune disorder [Unknown]
  - Nasopharyngitis [Unknown]
  - Respiratory disorder [Unknown]
